FAERS Safety Report 5445861-2 (Version None)
Quarter: 2007Q3

REPORT INFORMATION
  Report Type: 
  Country: None (occurrence: None)
  Receive Date: 20070907
  Receipt Date: 20070905
  Transmission Date: 20080115
  Serious: Yes (Life-Threatening, Hospitalization)
  Sender: FDA-Public Use
  Company Number: PHRM2007FR02091

PATIENT
  Age: 67 Year
  Sex: Male

DRUGS (9)
  1. LASIX [Concomitant]
     Dates: start: 20070826
  2. ESOMEPRAZOLE MAGNESIUM [Concomitant]
     Dates: start: 20070826
  3. PRIMPERAN INJ [Concomitant]
     Dates: start: 20070826
  4. KAYEXALATE [Concomitant]
     Dates: start: 20070826
  5. COAPROVEL [Concomitant]
  6. TENORMIN [Concomitant]
  7. PERFALGAN [Concomitant]
  8. OFLOCET [Concomitant]
  9. AREDIA [Suspect]
     Indication: HYPERCALCAEMIA OF MALIGNANCY
     Dosage: 90 MG, QD
     Route: 042
     Dates: start: 20070822, end: 20070825

REACTIONS (5)
  - BLOOD CREATININE INCREASED [None]
  - DIALYSIS [None]
  - HYPERCALCIURIA [None]
  - RENAL FAILURE ACUTE [None]
  - RENAL TUBULAR NECROSIS [None]
